FAERS Safety Report 6999492-3 (Version None)
Quarter: 2010Q3

REPORT INFORMATION
  Report Type: 
  Country: None (occurrence: None)
  Receive Date: 20100920
  Receipt Date: 20091119
  Transmission Date: 20110219
  Serious: Yes (Other)
  Sender: FDA-Public Use
  Company Number: US-ASTRAZENECA-2006UW26683

PATIENT
  Age: 631 Month
  Sex: Female
  Weight: 108.9 kg

DRUGS (14)
  1. SEROQUEL [Suspect]
     Indication: NERVOUSNESS
     Dosage: 100-200 MG
     Route: 048
     Dates: start: 20020522
  2. SEROQUEL [Suspect]
     Route: 048
     Dates: end: 20041001
  3. GEODON [Concomitant]
     Dosage: 80 MG DISPENSED
     Dates: start: 20041112
  4. CLONIDINE HCL [Concomitant]
     Dosage: 0.1-0.2 MG DISPENSED, 0.2 MG QD
     Dates: start: 20030725
  5. LOTREL [Concomitant]
     Dosage: 5/20 MG, 10/20 MG DISPENSED, 10-20 MG Q AM
     Dates: start: 20031128
  6. HYDROCHLOROTHIAZIDE [Concomitant]
     Dosage: 25 MG DISPENSED
     Dates: start: 20040319
  7. DEPAKOTE ER [Concomitant]
     Dosage: 500 MG DISPENSED
     Dates: start: 20041112
  8. LORAZEPAM [Concomitant]
     Dosage: 1 MG DISPENSED
     Dates: start: 20041112
  9. NORVASC [Concomitant]
     Dosage: 5-10 MG DISPENSED, 5 MG QD
     Dates: start: 20041112
  10. BENZTROPINE MESYLATE [Concomitant]
     Dosage: 1 MG DISPENSED
     Dates: start: 20041112
  11. METFORMIN HCL [Concomitant]
     Dosage: 500 MG DISPENSED
     Dates: start: 20041112
  12. PREMPRO [Concomitant]
     Dosage: 0.625/2.5 MG DISPENSED
     Dates: start: 20040917
  13. METOPROLOL [Concomitant]
     Dates: start: 20071201
  14. OMACOR [Concomitant]
     Dates: start: 20070701

REACTIONS (3)
  - DIABETES MELLITUS [None]
  - DIABETIC KETOACIDOSIS [None]
  - TYPE 2 DIABETES MELLITUS [None]
